FAERS Safety Report 9209079 (Version 1)
Quarter: 2013Q2

REPORT INFORMATION
  Report Type: Spontaneous
  Country: US (occurrence: US)
  Receive Date: 20130404
  Receipt Date: 20130404
  Transmission Date: 20140414
  Serious: Yes (Hospitalization, Other)
  Sender: FDA-Public Use
  Company Number: PHEH2013US007053

PATIENT
  Sex: Male

DRUGS (15)
  1. DIOVAN [Suspect]
     Indication: HYPERTENSION
     Dosage: 80 MG, DAILY
     Route: 048
  2. OMEPRAZOLE [Suspect]
     Indication: GASTRIC ULCER
     Dosage: UNK UKN, UNK
  3. FENOFIBRATE [Suspect]
     Dosage: UNK UKN, UNK
  4. SIMVASTATIN [Suspect]
     Dosage: UNK UKN, UNK
  5. AMLODIPINE [Suspect]
     Dosage: UNK UKN, UNK
  6. LIVALO [Suspect]
     Dosage: UNK UKN, UNK
  7. COREG [Suspect]
     Dosage: UNK UKN, UNK
  8. COLCRYS [Suspect]
     Dosage: UNK UKN, UNK
  9. PLAVIX [Suspect]
     Dosage: UNK UKN, UNK
  10. NITROGLYCERIN [Concomitant]
     Dosage: UNK UKN, UNK
  11. ASPIRIN [Concomitant]
     Dosage: UNK UKN, UNK
  12. PANTOPRAZOLE [Concomitant]
     Indication: GASTRIC ULCER
     Dosage: UNK UKN, UNK
  13. LIBRIUM ^ICN^ [Concomitant]
     Dosage: UNK UKN, UNK
  14. MAG-TAB [Concomitant]
     Dosage: UNK UKN, UNK
  15. MYLANTA                                 /USA/ [Concomitant]
     Dosage: UNK UKN, UNK

REACTIONS (8)
  - Myocardial infarction [Unknown]
  - Gastric ulcer [Unknown]
  - Tremor [Unknown]
  - Skin burning sensation [Unknown]
  - Insomnia [Unknown]
  - Asthenia [Unknown]
  - Fatigue [Unknown]
  - Diarrhoea [Unknown]
